FAERS Safety Report 15742211 (Version 1)
Quarter: 2018Q4

REPORT INFORMATION
  Report Type: Spontaneous
  Country: FR (occurrence: FR)
  Receive Date: 20181219
  Receipt Date: 20181219
  Transmission Date: 20190205
  Serious: Yes (Other)
  Sender: FDA-Public Use
  Company Number: FR-ANIPHARMA-2018-FR-000216

PATIENT
  Age: 85 Year
  Sex: Male
  Weight: 72 kg

DRUGS (5)
  1. CANDESARTAN. [Suspect]
     Active Substance: CANDESARTAN
     Indication: WRONG PATIENT RECEIVED PRODUCT
     Dosage: 8 MG UNK
     Route: 048
     Dates: start: 20181212
  2. ELIQUIS [Concomitant]
     Active Substance: APIXABAN
     Dosage: UNK
     Route: 065
  3. CETIRIZINE [Concomitant]
     Active Substance: CETIRIZINE HYDROCHLORIDE
     Dosage: UNK
     Route: 048
  4. BISOCE [Suspect]
     Active Substance: BISOPROLOL
     Dosage: 1 DF UNK
     Route: 048
  5. METFORMIN [Concomitant]
     Active Substance: METFORMIN HYDROCHLORIDE
     Dosage: UNK
     Route: 048

REACTIONS (5)
  - Bradycardia [Unknown]
  - Product administration error [Unknown]
  - Hypotension [Unknown]
  - Fall [Unknown]
  - Wrong patient received product [Unknown]

NARRATIVE: CASE EVENT DATE: 20181113
